FAERS Safety Report 13632869 (Version 4)
Quarter: 2017Q3

REPORT INFORMATION
  Report Type: Report from Study
  Country: US (occurrence: US)
  Receive Date: 20170609
  Receipt Date: 20170807
  Transmission Date: 20171127
  Serious: Yes (Hospitalization, Other)
  Sender: FDA-Public Use
  Company Number: US-AMGEN-USASL2017076961

PATIENT
  Age: 86 Year
  Sex: Female

DRUGS (2)
  1. NPLATE [Suspect]
     Active Substance: ROMIPLOSTIM
     Indication: IMMUNE THROMBOCYTOPENIC PURPURA
     Dosage: 4 MUG, QWK
     Route: 065
     Dates: end: 201707
  2. NPLATE [Suspect]
     Active Substance: ROMIPLOSTIM
     Dosage: 10 MUG, QWK
     Route: 065
     Dates: end: 201707

REACTIONS (15)
  - Ear haemorrhage [Unknown]
  - Muscular weakness [Unknown]
  - Cystitis [Not Recovered/Not Resolved]
  - Anaemia [Not Recovered/Not Resolved]
  - Arthralgia [Unknown]
  - Red blood cell count abnormal [Not Recovered/Not Resolved]
  - Dyspnoea [Unknown]
  - Platelet count abnormal [Unknown]
  - Limb discomfort [Unknown]
  - Ear disorder [Unknown]
  - Drug ineffective [Unknown]
  - Polyuria [Unknown]
  - Fatigue [Unknown]
  - Hypoacusis [Unknown]
  - Headache [Not Recovered/Not Resolved]

NARRATIVE: CASE EVENT DATE: 201705
